FAERS Safety Report 9523061 (Version 1)
Quarter: 2013Q1

REPORT INFORMATION
  Report Type: Spontaneous
  Country: US (occurrence: None)
  Receive Date: 20130305
  Receipt Date: 20130305
  Transmission Date: 20140127
  Serious: Yes (Other)
  Sender: FDA-Public Use
  Company Number: 163-21880-12031787

PATIENT
  Age: 69 Year
  Sex: Female

DRUGS (10)
  1. REVLIMID (LENALIDOMIDE) (CAPSULES) [Suspect]
     Indication: PLASMA CELL MYELOMA
     Dosage: 21 IN 21 D
     Route: 048
     Dates: start: 20120209
  2. TYLENOL [Concomitant]
  3. DIVALPROEX SODIUM [Concomitant]
  4. VENLAFAXINE [Concomitant]
  5. ADVAIR HFA [Concomitant]
  6. SPIRIVA HANDIHALER [Concomitant]
  7. TYVASO [Concomitant]
  8. ACYCLOVIR [Concomitant]
  9. LEVOTHYROXINE SODIUM [Concomitant]
  10. DIAZEPAM [Concomitant]

REACTIONS (1)
  - Pancytopenia [None]
